FAERS Safety Report 14218443 (Version 5)
Quarter: 2019Q1

REPORT INFORMATION
  Report Type: Report from Study
  Country: CN (occurrence: CN)
  Receive Date: 20171123
  Receipt Date: 20190118
  Transmission Date: 20190417
  Serious: Yes (Life-Threatening, Other)
  Sender: FDA-Public Use
  Company Number: CN-009507513-1709CHN010099

PATIENT
  Age: 6 Year
  Sex: Female
  Weight: 21.1 kg

DRUGS (4)
  1. POSACONAZOLE [Suspect]
     Active Substance: POSACONAZOLE
     Dosage: 32 MILLIGRAM, TID
     Route: 048
     Dates: start: 20170926, end: 20171002
  2. POSACONAZOLE [Suspect]
     Active Substance: POSACONAZOLE
     Dosage: UNK
     Route: 048
     Dates: start: 20171002, end: 20171006
  3. POSACONAZOLE [Suspect]
     Active Substance: POSACONAZOLE
     Dosage: 100 MILLIGRAM, TID
     Route: 048
     Dates: start: 20170904, end: 20170925
  4. POSACONAZOLE [Suspect]
     Active Substance: POSACONAZOLE
     Dosage: 32 MILLIGRAM, TID
     Route: 048
     Dates: start: 20171020, end: 20171025

REACTIONS (58)
  - Oxygen saturation decreased [Recovered/Resolved]
  - Blood creatinine decreased [Recovered/Resolved]
  - Blood creatinine decreased [Recovered/Resolved]
  - Blood uric acid decreased [Recovered/Resolved]
  - Blood magnesium decreased [Recovered/Resolved]
  - Pyrexia [Recovered/Resolved]
  - Gingival pain [Recovered/Resolved]
  - Mouth ulceration [Recovering/Resolving]
  - Blood cholinesterase decreased [Recovered/Resolved]
  - Bilirubin conjugated increased [Recovered/Resolved]
  - Blood phosphorus decreased [Recovered/Resolved]
  - Blood magnesium decreased [Recovered/Resolved]
  - Blood potassium decreased [Recovered/Resolved]
  - Bacterial test positive [Recovered/Resolved]
  - White blood cell count decreased [Not Recovered/Not Resolved]
  - Face oedema [Recovered/Resolved]
  - Oxygen saturation decreased [Recovered/Resolved]
  - Hypokalaemia [Not Recovered/Not Resolved]
  - Globulins decreased [Recovered/Resolved]
  - Bone pain [Recovered/Resolved]
  - Blood sodium decreased [Recovered/Resolved]
  - Blood uric acid decreased [Recovered/Resolved]
  - Blood cholinesterase decreased [Recovered/Resolved]
  - Blood potassium decreased [Recovered/Resolved]
  - Blood potassium decreased [Recovered/Resolved]
  - Blood potassium decreased [Recovered/Resolved]
  - Bacterial test positive [Recovered/Resolved]
  - Bacterial test positive [Not Recovered/Not Resolved]
  - Nasal congestion [Recovered/Resolved]
  - Pollakiuria [Recovered/Resolved]
  - Off label use [Unknown]
  - Blood calcium decreased [Recovered/Resolved]
  - Blood calcium decreased [Recovered/Resolved]
  - Blood potassium decreased [Recovered/Resolved]
  - Blood potassium decreased [Recovered/Resolved]
  - Blood potassium decreased [Recovered/Resolved]
  - White blood cell count decreased [Recovered/Resolved]
  - Oedema peripheral [Recovered/Resolved]
  - Blood albumin decreased [Recovered/Resolved]
  - Blood potassium decreased [Recovered/Resolved]
  - Blood potassium decreased [Recovered/Resolved]
  - Bacterial test positive [Recovered/Resolved]
  - Bacterial test positive [Recovered/Resolved]
  - White blood cell count increased [Recovered/Resolved]
  - Diarrhoea infectious [Recovering/Resolving]
  - Blood cholinesterase decreased [Recovered/Resolved]
  - Blood phosphorus decreased [Recovered/Resolved]
  - Blood potassium decreased [Recovered/Resolved]
  - Hypomagnesaemia [Not Recovered/Not Resolved]
  - Blood phosphorus decreased [Recovered/Resolved]
  - Blood calcium decreased [Recovered/Resolved]
  - Blood magnesium decreased [Recovered/Resolved]
  - Blood magnesium decreased [Recovered/Resolved]
  - Blood potassium decreased [Recovered/Resolved]
  - Bacterial test positive [Recovered/Resolved]
  - Febrile infection [Recovered/Resolved]
  - Heart rate increased [Recovered/Resolved]
  - Skin injury [Recovering/Resolving]

NARRATIVE: CASE EVENT DATE: 20170904
